FAERS Safety Report 13909101 (Version 1)
Quarter: 2017Q3

REPORT INFORMATION
  Report Type: Spontaneous
  Country: US (occurrence: US)
  Receive Date: 20170828
  Receipt Date: 20170828
  Transmission Date: 20171127
  Serious: No
  Sender: FDA-Public Use
  Company Number: US-009507513-1708USA011434

PATIENT
  Age: 18 Year
  Sex: Female
  Weight: 42.18 kg

DRUGS (1)
  1. NEXPLANON [Suspect]
     Active Substance: ETONOGESTREL
     Indication: CONTRACEPTION
     Dosage: 3 YEAR IMPLANT, IMPLANT INSIDE THE LEFT ARM
     Route: 059

REACTIONS (2)
  - Menorrhagia [Unknown]
  - Vaginal discharge [Not Recovered/Not Resolved]
